FAERS Safety Report 6877670-1 (Version None)
Quarter: 2010Q3

REPORT INFORMATION
  Report Type: 
  Country: None (occurrence: None)
  Receive Date: 20100727
  Receipt Date: 20100510
  Transmission Date: 20110219
  Serious: No
  Sender: FDA-Public Use
  Company Number: US-ABBOTT-10P-163-0644070-00

PATIENT
  Weight: 93.07 kg

DRUGS (2)
  1. SYNTHROID [Suspect]
     Indication: AUTOIMMUNE THYROIDITIS
     Route: 048
     Dates: start: 20100319, end: 20100401
  2. ORTHO TRI-CYCLEN [Concomitant]
     Indication: POLYCYSTIC OVARIES

REACTIONS (9)
  - ARTHRALGIA [None]
  - ARTHRITIS [None]
  - BONE PAIN [None]
  - HEADACHE [None]
  - IRRITABILITY [None]
  - MUSCLE SPASMS [None]
  - PALPITATIONS [None]
  - POLYMENORRHOEA [None]
  - URTICARIA [None]
